FAERS Safety Report 5623525-X (Version None)
Quarter: 2008Q1

REPORT INFORMATION
  Report Type: 
  Country: None (occurrence: None)
  Receive Date: 20080212
  Receipt Date: 20080201
  Transmission Date: 20080703
  Serious: Yes (Hospitalization, Other)
  Sender: FDA-Public Use
  Company Number: US-ELI_LILLY_AND_COMPANY-US200710004471

PATIENT
  Sex: Female
  Weight: 131.97 kg

DRUGS (22)
  1. BYETTA [Suspect]
     Dosage: 5 UG, 2/D
     Route: 058
     Dates: start: 20060609, end: 20060601
  2. BYETTA [Suspect]
     Dosage: 10 UG, 2/D
     Route: 058
     Dates: start: 20060601, end: 20060901
  3. BYETTA [Suspect]
     Dosage: 5 UG, 2/D
     Route: 058
     Dates: start: 20060927, end: 20070709
  4. BYETTA [Suspect]
     Dosage: 10 UG, 2/D
     Route: 058
     Dates: start: 20070714, end: 20070802
  5. ASTELIN [Concomitant]
     Dosage: 40 MG, AS NEEDED
     Route: 065
  6. ASTELIN [Concomitant]
     Dosage: 30 MG, AS NEEDED
     Route: 048
  7. AVANDIA [Concomitant]
     Dosage: 2 MG, 2/D
     Route: 048
  8. AVANDIA [Concomitant]
     Dosage: 2 MG, DAILY (1/D)
     Route: 048
     Dates: end: 20070709
  9. BENICAR [Concomitant]
     Dosage: 5 MG, DAILY (1/D)
     Route: 048
  10. BENICAR [Concomitant]
     Dosage: 40 MG, DAILY (1/D)
     Route: 048
  11. DARVOCET-N 100 [Concomitant]
     Dosage: 1 D/F, DAILY (1/D)
     Route: 048
  12. FLEXERIL [Concomitant]
     Dosage: 10 MG, AS NEEDED
     Route: 048
  13. FLONASE [Concomitant]
     Dosage: UNK, AS NEEDED
     Route: 065
  14. LIPITOR [Concomitant]
     Dosage: 10 MG, DAILY (1/D)
     Route: 048
  15. OMACOR [Concomitant]
     Dosage: 2 G, 2/D
     Route: 048
  16. SINGULAIR [Concomitant]
     Dosage: 10 MG, DAILY (1/D)
     Route: 048
  17. TRICOR [Concomitant]
     Dosage: 145 MG, DAILY (1/D)
     Route: 048
  18. SYNTHROID [Concomitant]
     Dosage: 0.175 MG, DAILY (1/D)
     Route: 048
  19. ULTRAM [Concomitant]
     Dosage: 200 MG, DAILY (1/D)
     Route: 048
  20. WELLBUTRIN [Concomitant]
     Dosage: 300 MG, DAILY (1/D)
     Route: 048
  21. ADVAIR DISKUS 100/50 [Concomitant]
     Dosage: UNK, AS NEEDED
     Route: 055
  22. DETROL /USA/ [Concomitant]
     Dosage: 4 MG, DAILY (1/D)
     Route: 048

REACTIONS (10)
  - ABDOMINAL HERNIA [None]
  - ANGIOMYOLIPOMA [None]
  - CARCINOID TUMOUR OF THE STOMACH [None]
  - FALL [None]
  - GASTROINTESTINAL HAEMORRHAGE [None]
  - HEADACHE [None]
  - LACERATION [None]
  - MUSCLE SPASMS [None]
  - PANCREATITIS ACUTE [None]
  - WEIGHT DECREASED [None]
